FAERS Safety Report 24372885 (Version 1)
Quarter: 2024Q3

REPORT INFORMATION
  Report Type: Spontaneous
  Country: CN (occurrence: CN)
  Receive Date: 20240927
  Receipt Date: 20240927
  Transmission Date: 20241017
  Serious: Yes (Hospitalization, Other)
  Sender: MERCK
  Company Number: CN-009507513-2409CHN008512

PATIENT
  Age: 60 Year
  Sex: Female
  Weight: 65 kg

DRUGS (4)
  1. KEYTRUDA [Suspect]
     Active Substance: PEMBROLIZUMAB
     Indication: Oesophageal carcinoma
     Dosage: 200 MG, ONCE
     Route: 041
     Dates: start: 20240722, end: 20240722
  2. CARBOPLATIN [Suspect]
     Active Substance: CARBOPLATIN
     Indication: Oesophageal carcinoma
     Dosage: 500 MG, ONCE
     Route: 041
     Dates: start: 20240720, end: 20240720
  3. PACLITAXEL [Suspect]
     Active Substance: PACLITAXEL
     Indication: Oesophageal carcinoma
     Dosage: 200 MG, ONCE
     Route: 041
     Dates: start: 20240720, end: 20240720
  4. PACLITAXEL [Suspect]
     Active Substance: PACLITAXEL
     Dosage: 170 MG, ONCE
     Route: 041
     Dates: start: 20240722, end: 20240722

REACTIONS (1)
  - Myelosuppression [Recovering/Resolving]

NARRATIVE: CASE EVENT DATE: 20240731
